FAERS Safety Report 8649835 (Version 2)
Quarter: 2012Q4

REPORT INFORMATION
  Report Type: 
  Country: US (occurrence: US)
  Receive Date: 20120705
  Receipt Date: 20121106
  Transmission Date: 20130627
  Serious: Yes (Hospitalization, Other)
  Sender: FDA-Public Use
  Company Number: US-BAYER-2012-064669

PATIENT
  Age: 33 Year
  Sex: Female
  Weight: 65.76 kg

DRUGS (8)
  1. YASMIN [Suspect]
     Indication: ACNE
     Dosage: UNK
     Dates: start: 200503, end: 200912
  2. YASMIN [Suspect]
     Indication: PREMENSTRUAL SYNDROME
  3. YAZ [Suspect]
     Indication: PREMENSTRUAL SYNDROME
     Dosage: UNK
     Dates: start: 200503, end: 200912
  4. YAZ [Suspect]
     Indication: MENSTRUAL CYCLE MANAGEMENT
  5. MOTRIN [Concomitant]
     Dosage: 800 mg, PRN
     Route: 048
  6. SINGULAIR [Concomitant]
     Dosage: 1 time daily
     Route: 048
  7. DICYCLOMINE [Concomitant]
     Dosage: 20 mg, daily
  8. VICODIN [Concomitant]

REACTIONS (8)
  - Deep vein thrombosis [None]
  - Pulmonary embolism [None]
  - Gallbladder disorder [None]
  - Biliary dyskinesia [None]
  - Pain [None]
  - Anxiety [None]
  - Injury [None]
  - Pain [None]
